FAERS Safety Report 5308004-1 (Version None)
Quarter: 2007Q2

REPORT INFORMATION
  Report Type: 
  Country: None (occurrence: None)
  Receive Date: 20070426
  Receipt Date: 20070418
  Transmission Date: 20071010
  Serious: Yes (Other)
  Sender: FDA-Public Use
  Company Number: US-JNJFOC-20070403394

PATIENT
  Age: 58 Year
  Sex: Male
  Weight: 86.9 kg

DRUGS (2)
  1. REMICADE [Suspect]
     Indication: RHEUMATOID ARTHRITIS
     Route: 042
     Dates: start: 20040518, end: 20070319
  2. AZULFIDINE [Concomitant]

REACTIONS (2)
  - HODGKIN'S DISEASE [None]
  - INFUSION RELATED REACTION [None]
